FAERS Safety Report 10186455 (Version 1)
Quarter: 2014Q2

REPORT INFORMATION
  Report Type: Spontaneous
  Country: GB (occurrence: GB)
  Receive Date: 20140521
  Receipt Date: 20140521
  Transmission Date: 20141212
  Serious: Yes (Other)
  Sender: FDA-Public Use
  Company Number: GB-WATSON-2014-10656

PATIENT
  Age: 41 Year
  Sex: Female

DRUGS (3)
  1. CLOZAPINE (UNKNOWN) [Suspect]
     Indication: SCHIZOAFFECTIVE DISORDER
     Dosage: UNKNOWN
     Route: 065
  2. VALPROIC ACID (UNKNOWN) [Suspect]
     Indication: SCHIZOAFFECTIVE DISORDER
     Dosage: UNKNOWN
     Route: 065
  3. DOCETAXEL (UNKNOWN) [Suspect]
     Indication: BREAST CANCER
     Dosage: UNKNOWN
     Route: 065

REACTIONS (2)
  - Leukopenia [Recovered/Resolved]
  - Neutropenia [Recovered/Resolved]
